FAERS Safety Report 4874043-8 (Version None)
Quarter: 2006Q1

REPORT INFORMATION
  Report Type: 
  Country: None (occurrence: None)
  Receive Date: 20060104
  Receipt Date: 20051220
  Transmission Date: 20060701
  Serious: Yes (Other)
  Sender: FDA-Public Use
  Company Number: 2005168298

PATIENT
  Sex: Male

DRUGS (3)
  1. VIAGRA [Suspect]
     Indication: ERECTILE DYSFUNCTION
     Dates: start: 20020101
  2. METFORMIN HCL [Concomitant]
  3. INSULIN [Concomitant]

REACTIONS (5)
  - BLINDNESS UNILATERAL [None]
  - DIABETIC EYE DISEASE [None]
  - DRUG INEFFECTIVE [None]
  - OCULAR VASCULAR DISORDER [None]
  - VISUAL FIELD DEFECT [None]
